FAERS Safety Report 20953744 (Version 4)
Quarter: 2022Q3

REPORT INFORMATION
  Report Type: Report from Study
  Country: TW (occurrence: TW)
  Receive Date: 20220613
  Receipt Date: 20220731
  Transmission Date: 20221026
  Serious: Yes (Death, Hospitalization)
  Sender: FDA-Public Use
  Company Number: TW-ABBVIE-22K-153-4428525-00

PATIENT
  Age: 73 Year
  Sex: Male
  Weight: 67 kg

DRUGS (30)
  1. RINVOQ [Suspect]
     Active Substance: UPADACITINIB
     Indication: Rheumatoid arthritis
     Route: 048
     Dates: start: 20220211, end: 20220609
  2. ABATACEPT [Concomitant]
     Active Substance: ABATACEPT
     Indication: Rheumatoid arthritis
     Dates: start: 202102, end: 202202
  3. METHOTREXATE [Concomitant]
     Active Substance: METHOTREXATE
     Indication: Rheumatoid arthritis
     Dates: start: 202102, end: 202112
  4. OLMESARTAN MEDOXOMIL [Concomitant]
     Active Substance: OLMESARTAN MEDOXOMIL
     Indication: Hypertension
     Dosage: AT BEDTIME
     Route: 048
     Dates: start: 20170210
  5. PILOCARPINE [Concomitant]
     Active Substance: PILOCARPINE
     Indication: Sjogren^s syndrome
     Route: 048
     Dates: start: 20110601
  6. PENTOXIFYLLINE [Concomitant]
     Active Substance: PENTOXIFYLLINE
     Indication: Hypoaesthesia
     Dosage: AT BEDTIME
     Route: 048
     Dates: start: 20200821
  7. PENTOXIFYLLINE [Concomitant]
     Active Substance: PENTOXIFYLLINE
     Indication: Pain in extremity
  8. COLCHICINE [Concomitant]
     Active Substance: COLCHICINE
     Indication: Hypoaesthesia
     Route: 048
     Dates: start: 20100503
  9. COLCHICINE [Concomitant]
     Active Substance: COLCHICINE
     Indication: Pain in extremity
  10. TAMSULOSIN [Concomitant]
     Active Substance: TAMSULOSIN
     Indication: Prostatomegaly
     Dosage: AT BEDTIME
     Route: 048
     Dates: start: 20170327
  11. MIRABEGRON [Concomitant]
     Active Substance: MIRABEGRON
     Indication: Urge incontinence
     Dosage: AT BEDTIME
     Route: 048
     Dates: start: 20220221, end: 20220419
  12. ENOXAPARIN SODIUM [Concomitant]
     Active Substance: ENOXAPARIN SODIUM
     Indication: Prophylaxis
     Route: 058
     Dates: start: 20200529
  13. BIO-CAL [Concomitant]
     Indication: Prophylaxis
     Dosage: 1 TABLET?BIO-CAL PLUS CHEWABLE (TRIBASIC CALCIUM PHOSPHATE, CHOLECALCIFEROL)
     Route: 048
     Dates: start: 20201016
  14. METHYLCOBALAMIN [Concomitant]
     Active Substance: METHYLCOBALAMIN
     Indication: Hypoaesthesia
     Route: 030
     Dates: start: 20160923
  15. METHYLCOBALAMIN [Concomitant]
     Active Substance: METHYLCOBALAMIN
     Indication: Pain in extremity
  16. IMIPRAMINE [Concomitant]
     Active Substance: IMIPRAMINE
     Indication: Hypoaesthesia
     Route: 048
     Dates: start: 20211112
  17. IMIPRAMINE [Concomitant]
     Active Substance: IMIPRAMINE
     Indication: Pain in extremity
  18. CLONAZEPAM [Concomitant]
     Active Substance: CLONAZEPAM
     Indication: Hypoaesthesia
     Route: 048
     Dates: start: 20200821
  19. CLONAZEPAM [Concomitant]
     Active Substance: CLONAZEPAM
     Indication: Pain in extremity
  20. DESMOPRESSIN ACETATE [Concomitant]
     Active Substance: DESMOPRESSIN ACETATE
     Indication: Nocturia
     Dosage: AT BEDTIME
     Route: 048
     Dates: start: 20180108
  21. AMINOPHYLLINE [Concomitant]
     Active Substance: AMINOPHYLLINE
     Indication: Dyspnoea
     Dosage: AT BEDTIME
     Route: 048
     Dates: start: 20211210
  22. SERTACONAZOLE NITRATE [Concomitant]
     Active Substance: SERTACONAZOLE NITRATE
     Indication: Tinea infection
     Dosage: 1 TUBE
     Route: 061
     Dates: start: 20220211
  23. SALICYLIC ACID AND BENZOIC ACID [Concomitant]
     Indication: Tinea infection
     Dosage: SBS (SALICYLIC ACID AND BENZOIC ACID)?1 TUBE
     Route: 061
     Dates: start: 20220211
  24. POVIDONE-IODINE [Concomitant]
     Active Substance: POVIDONE-IODINE
     Indication: Prophylaxis
     Dosage: 1 TUBE
     Route: 061
     Dates: start: 20220114
  25. FENTICONAZOLE NITRATE [Concomitant]
     Active Substance: FENTICONAZOLE NITRATE
     Indication: Tinea infection
     Route: 061
     Dates: start: 20220211
  26. SULFASALAZINE [Concomitant]
     Active Substance: SULFASALAZINE
     Indication: Rheumatoid arthritis
     Route: 048
     Dates: start: 20210211
  27. HYDROXYCHLOROQUINE [Concomitant]
     Active Substance: HYDROXYCHLOROQUINE
     Indication: Rheumatoid arthritis
     Route: 048
     Dates: start: 20210211
  28. CELECOXIB [Concomitant]
     Active Substance: CELECOXIB
     Indication: Rheumatoid arthritis
     Dosage: EVERY NIGHT
     Route: 048
     Dates: start: 20210211
  29. PREDNISOLONE [Concomitant]
     Active Substance: PREDNISOLONE
     Indication: Rheumatoid arthritis
     Route: 048
     Dates: start: 20210211
  30. LEFLUNOMIDE [Concomitant]
     Active Substance: LEFLUNOMIDE
     Indication: Rheumatoid arthritis
     Route: 048
     Dates: start: 20210211

REACTIONS (2)
  - Respiratory failure [Fatal]
  - COVID-19 [Fatal]

NARRATIVE: CASE EVENT DATE: 20220101
